FAERS Safety Report 5082303-3 (Version None)
Quarter: 2006Q3

REPORT INFORMATION
  Report Type: 
  Country: None (occurrence: None)
  Receive Date: 20060817
  Receipt Date: 20060809
  Transmission Date: 20061208
  Serious: Yes (Other)
  Sender: FDA-Public Use
  Company Number: US-JNJFOC-20060802427

PATIENT
  Age: 29 Year
  Sex: Male

DRUGS (1)
  1. REMICADE [Suspect]
     Indication: COLITIS ULCERATIVE
     Route: 042

REACTIONS (7)
  - DIFFUSE LARGE B-CELL LYMPHOMA [None]
  - DRUG INEFFECTIVE [None]
  - EPSTEIN-BARR VIRUS TEST POSITIVE [None]
  - FAECAL INCONTINENCE [None]
  - GENERAL PHYSICAL HEALTH DETERIORATION [None]
  - IRRITABLE BOWEL SYNDROME [None]
  - POST PROCEDURAL DIARRHOEA [None]
